FAERS Safety Report 13755257 (Version 4)
Quarter: 2018Q1

REPORT INFORMATION
  Report Type: Spontaneous
  Country: JP (occurrence: JP)
  Receive Date: 20170714
  Receipt Date: 20180309
  Transmission Date: 20180508
  Serious: Yes (Death, Hospitalization, Other)
  Sender: FDA-Public Use
  Company Number: JP-GILEAD-2017-0282379

PATIENT
  Age: 66 Year
  Sex: Male

DRUGS (1)
  1. HARVONI [Suspect]
     Active Substance: LEDIPASVIR\SOFOSBUVIR
     Indication: CHRONIC HEPATITIS C
     Dosage: UNK
     Route: 048
     Dates: start: 20160128, end: 20160420

REACTIONS (14)
  - Hepatocellular carcinoma [Fatal]
  - Gastric ulcer [Unknown]
  - Splenomegaly [Unknown]
  - Anaemia [Unknown]
  - Varices oesophageal [Unknown]
  - Metastases to lymph nodes [Unknown]
  - Hepatic lesion [Unknown]
  - Ascites [Unknown]
  - Gallbladder enlargement [Unknown]
  - Metastases to lung [Unknown]
  - Metastases to bone [Unknown]
  - Cardiac disorder [Unknown]
  - Faeces discoloured [Unknown]
  - Diverticulum [Unknown]

NARRATIVE: CASE EVENT DATE: 20160513
